FAERS Safety Report 5978114-4 (Version None)
Quarter: 2008Q4

REPORT INFORMATION
  Report Type: 
  Country: None (occurrence: None)
  Receive Date: 20081126
  Receipt Date: 20081113
  Transmission Date: 20090506
  Serious: Yes (Hospitalization)
  Sender: FDA-Public Use
  Company Number: 231823K08USA

PATIENT
  Age: 49 Year
  Sex: Female
  Weight: 97 kg

DRUGS (10)
  1. REBIF [Suspect]
     Indication: MULTIPLE SCLEROSIS
     Dosage: 44 MCG, 3 IN 1 WEEKS, SUBCUTANEOUS
     Route: 058
     Dates: start: 20070328
  2. PROAIR (SALBUTAMOL SULFATE) [Concomitant]
  3. ZOMIG [Concomitant]
  4. MULTI-VITAMIN [Concomitant]
  5. GEODON (ZIPRASIDONE HYDROCHLORIDE) [Concomitant]
  6. RITALIN [Concomitant]
  7. ESTRADIOL [Concomitant]
  8. CELEXA [Concomitant]
  9. KLONOPIN [Concomitant]
  10. HYZAAR [Concomitant]

REACTIONS (9)
  - ARTHRITIS [None]
  - DISLOCATION OF VERTEBRA [None]
  - EXOSTOSIS [None]
  - FALL [None]
  - HIP FRACTURE [None]
  - IATROGENIC INJURY [None]
  - LIMB INJURY [None]
  - PAIN [None]
  - TENDON RUPTURE [None]
